FAERS Safety Report 17516275 (Version 1)
Quarter: 2020Q1

REPORT INFORMATION
  Report Type: Spontaneous
  Country: US (occurrence: US)
  Receive Date: 20200306
  Receipt Date: 20200306
  Transmission Date: 20200409
  Serious: Yes (Death)
  Sender: FDA-Public Use
  Company Number: None

PATIENT
  Sex: Male

DRUGS (10)
  1. DIPHEN/ATROP [Concomitant]
     Active Substance: ATROPINE SULFATE\DIPHENOXYLATE
  2. OXYBUTYNIN. [Concomitant]
     Active Substance: OXYBUTYNIN CHLORIDE
  3. DEXAMETASON [Concomitant]
     Active Substance: DEXAMETHASONE
  4. PREDINSONE [Concomitant]
  5. NYSTATIN. [Concomitant]
     Active Substance: NYSTATIN
  6. SERTRALINE [Concomitant]
     Active Substance: SERTRALINE HYDROCHLORIDE
  7. JADENU [Suspect]
     Active Substance: DEFERASIROX
     Indication: IRON METABOLISM DISORDER
     Route: 048
     Dates: start: 20180126, end: 20200229
  8. ACYCLOVIR. [Concomitant]
     Active Substance: ACYCLOVIR
  9. FLUCONAZOLE. [Concomitant]
     Active Substance: FLUCONAZOLE
  10. TEMAZEPAM. [Concomitant]
     Active Substance: TEMAZEPAM

REACTIONS (1)
  - Death [None]
